FAERS Safety Report 25920459 (Version 1)
Quarter: 2025Q4

REPORT INFORMATION
  Report Type: Report from Study
  Country: US (occurrence: US)
  Receive Date: 20251014
  Receipt Date: 20251014
  Transmission Date: 20260117
  Serious: No
  Sender: MALLINCKRODT
  Company Number: US-MALLINCKRODT-MNK202505927

PATIENT
  Sex: Female

DRUGS (2)
  1. CORTICOTROPIN [Suspect]
     Active Substance: CORTICOTROPIN
     Indication: Systemic lupus erythematosus
     Dosage: UNKNOWN
  2. PREDNISONE [Concomitant]
     Active Substance: PREDNISONE
     Dosage: UNKNOWN

REACTIONS (7)
  - Blood glucose decreased [Unknown]
  - Pain in extremity [Unknown]
  - Contusion [Unknown]
  - Insomnia [Unknown]
  - Fatigue [Unknown]
  - Decreased appetite [Unknown]
  - Injection site bruising [Recovered/Resolved]
